FAERS Safety Report 7391027-9 (Version None)
Quarter: 2011Q2

REPORT INFORMATION
  Report Type: 
  Country: None (occurrence: None)
  Receive Date: 20110404
  Receipt Date: 20110322
  Transmission Date: 20111010
  Serious: Yes (Death)
  Sender: FDA-Public Use
  Company Number: JO-CELGENEUS-088-21880-11011634

PATIENT
  Sex: Female
  Weight: 65 kg

DRUGS (6)
  1. ARANESP [Concomitant]
     Dosage: 300 MICROGRAM
     Route: 065
     Dates: start: 20110111, end: 20110113
  2. PLATELETS [Concomitant]
     Indication: THROMBOCYTOPENIA
     Route: 051
     Dates: start: 20110115, end: 20110117
  3. LEXOTANIL [Concomitant]
     Dosage: 1.5 MILLIGRAM
     Route: 065
     Dates: start: 20110103, end: 20110117
  4. REVLIMID [Suspect]
     Route: 048
  5. DECADRON [Concomitant]
     Dosage: 16 MILLIGRAM
     Route: 065
     Dates: start: 20110103, end: 20110110
  6. LASIX [Concomitant]
     Dosage: 80 MILLIGRAM
     Route: 051
     Dates: start: 20110111, end: 20110113

REACTIONS (3)
  - THROMBOCYTOPENIA [None]
  - DISEASE PROGRESSION [None]
  - SUBARACHNOID HAEMORRHAGE [None]
